FAERS Safety Report 18196421 (Version 3)
Quarter: 2020Q3

REPORT INFORMATION
  Report Type: Report from Study
  Country: JP (occurrence: JP)
  Receive Date: 20200825
  Receipt Date: 20200907
  Transmission Date: 20201103
  Serious: Yes (Other)
  Sender: FDA-Public Use
  Company Number: JP-SA-2020SA220677

PATIENT

DRUGS (4)
  1. IRINOTECAN HYDROCHLORIDE. [Concomitant]
     Active Substance: IRINOTECAN HYDROCHLORIDE
     Indication: COLON CANCER
     Dosage: DOSAGE (PER CYCLE): 0.8, CYCLE 2 AND THEREAFTER: 80% DOSE
     Route: 065
     Dates: start: 20170904
  2. AFLIBERCEPT [Suspect]
     Active Substance: AFLIBERCEPT
     Indication: COLON CANCER
     Dosage: 16 CYCLES, DOSAGE (PER CYCLE): 0.9, NUMBER OF WEEKS PER CYCLE: 2.2
     Route: 041
     Dates: start: 20170904, end: 20180508
  3. LEUCOVORIN [CALCIUM FOLINATE] [Concomitant]
     Active Substance: LEUCOVORIN
     Indication: COLON CANCER
     Route: 065
     Dates: start: 20170904
  4. 5?FU [FLUOROURACIL] [Concomitant]
     Active Substance: FLUOROURACIL
     Indication: COLON CANCER
     Dosage: DOSAGE (PER CYCLE): 0.8, CYCLE 2 AND THEREAFTER: 80% DOSE
     Route: 065
     Dates: start: 20170904

REACTIONS (11)
  - Nervous system disorder [Unknown]
  - Decreased appetite [Unknown]
  - Stomatitis [Unknown]
  - Nausea [Unknown]
  - Dry skin [Unknown]
  - Vomiting [Unknown]
  - Hypertension [Unknown]
  - Protein urine [Unknown]
  - Diarrhoea [Unknown]
  - Palmar-plantar erythrodysaesthesia syndrome [Unknown]
  - Fatigue [Unknown]

NARRATIVE: CASE EVENT DATE: 2018
